FAERS Safety Report 24215969 (Version 1)
Quarter: 2024Q3

REPORT INFORMATION
  Report Type: Spontaneous
  Country: CZ (occurrence: CZ)
  Receive Date: 20240816
  Receipt Date: 20240816
  Transmission Date: 20241016
  Serious: Yes (Hospitalization)
  Sender: CHEPLAPHARM
  Company Number: CZ-CHEPLA-2024010588

PATIENT
  Age: 45 Year
  Sex: Male

DRUGS (9)
  1. OLANZAPINE [Suspect]
     Active Substance: OLANZAPINE
     Indication: Schizophrenia
     Dosage: DAILY DOSE: 30 MILLIGRAM
  2. CANNABIS SATIVA SUBSP. INDICA TOP [Suspect]
     Active Substance: CANNABIS SATIVA SUBSP. INDICA TOP
  3. RISPERIDONE [Suspect]
     Active Substance: RISPERIDONE
     Dosage: DEPOT
  4. PALIPERIDONE [Suspect]
     Active Substance: PALIPERIDONE
  5. CLOZAPINE [Suspect]
     Active Substance: CLOZAPINE
  6. ZOLPIDEM [Concomitant]
     Active Substance: ZOLPIDEM TARTRATE
  7. HALOPERIDOL [Concomitant]
     Active Substance: HALOPERIDOL
  8. CLONAZEPAM [Concomitant]
     Active Substance: CLONAZEPAM
  9. LEVOMEPROMAZINE [Concomitant]
     Active Substance: LEVOMEPROMAZINE

REACTIONS (2)
  - Psychotic disorder [Unknown]
  - Drug ineffective [Unknown]
